FAERS Safety Report 21807268 (Version 1)
Quarter: 2023Q1

REPORT INFORMATION
  Report Type: Spontaneous
  Country: CN (occurrence: CN)
  Receive Date: 20230102
  Receipt Date: 20230102
  Transmission Date: 20230418
  Serious: Yes (Life-Threatening, Hospitalization, Other)
  Sender: FDA-Public Use
  Company Number: None

PATIENT
  Age: 77 Year
  Sex: Female
  Weight: 50 kg

DRUGS (6)
  1. CYCLOPHOSPHAMIDE [Suspect]
     Active Substance: CYCLOPHOSPHAMIDE
     Indication: Diffuse large B-cell lymphoma stage IV
     Dosage: 0.7G, QD, DILUTED WITH 500 ML OF 0.9% SODIUM CHLORIDE, FOR 5.5 HOURS
     Route: 041
     Dates: start: 20221121, end: 20221121
  2. SODIUM CHLORIDE [Suspect]
     Active Substance: SODIUM CHLORIDE
     Indication: Medication dilution
     Dosage: 500 ML, QD, USED TO DILUTE 0.7G OF CYCLOPHOSPHAMIDE, FOR 5.5 HOURS
     Route: 041
     Dates: start: 20221121, end: 20221121
  3. SODIUM CHLORIDE [Suspect]
     Active Substance: SODIUM CHLORIDE
     Dosage: 600 ML, QD, USED TO DILUTE 400 MG OF RITUXIMAB FOR 5 HOURS
     Route: 041
     Dates: start: 20221121, end: 20221121
  4. DEXTROSE MONOHYDRATE [Suspect]
     Active Substance: DEXTROSE MONOHYDRATE
     Indication: Medication dilution
     Dosage: 250 ML, QD, USED TO DILUTE 50 MG OF PIRARUBICIN HYDROCHLORIDE
     Route: 041
     Dates: start: 20221121, end: 20221121
  5. RITUXIMAB [Suspect]
     Active Substance: RITUXIMAB
     Indication: Diffuse large B-cell lymphoma stage IV
     Dosage: 400 MG, QD, DILUTED WITH 600 ML OF 0.9% SODIUM CHLORIDE, FOR 5 HOURS
     Route: 041
     Dates: start: 20221121, end: 20221121
  6. PIRARUBICIN HYDROCHLORIDE [Suspect]
     Active Substance: PIRARUBICIN HYDROCHLORIDE
     Indication: Diffuse large B-cell lymphoma stage IV
     Dosage: 50 MG, QD, DILUTED WITH 250 ML OF 5% GLUCOSE, FOR 2 HOURS
     Route: 041
     Dates: start: 20221121, end: 20221121

REACTIONS (3)
  - Myelosuppression [Unknown]
  - Asthenia [Unknown]
  - Decreased appetite [Unknown]

NARRATIVE: CASE EVENT DATE: 20221204
